FAERS Safety Report 21669236 (Version 1)
Quarter: 2022Q4

REPORT INFORMATION
  Report Type: Spontaneous
  Country: US (occurrence: None)
  Receive Date: 20221130
  Receipt Date: 20221130
  Transmission Date: 20230112
  Serious: Yes (Hospitalization)
  Sender: FDA-Public Use
  Company Number: None

PATIENT
  Age: 57 Year
  Sex: Female

DRUGS (1)
  1. BETASERON [Suspect]
     Active Substance: INTERFERON BETA-1B
     Dosage: OTHER FREQUENCY : N/A;?
     Route: 058
     Dates: start: 201710

REACTIONS (1)
  - Cellulitis [None]

NARRATIVE: CASE EVENT DATE: 20221130
